FAERS Safety Report 6902920-2 (Version None)
Quarter: 2010Q3

REPORT INFORMATION
  Report Type: 
  Country: None (occurrence: None)
  Receive Date: 20100803
  Receipt Date: 20080625
  Transmission Date: 20110219
  Serious: No
  Sender: FDA-Public Use
  Company Number: US-PFIZER INC-2008055633

PATIENT
  Age: 85 Year

DRUGS (1)
  1. LYRICA [Suspect]

REACTIONS (2)
  - AMNESIA [None]
  - CONFUSIONAL STATE [None]
